FAERS Safety Report 13615969 (Version 3)
Quarter: 2017Q3

REPORT INFORMATION
  Report Type: Spontaneous
  Country: JP (occurrence: JP)
  Receive Date: 20170606
  Receipt Date: 20170802
  Transmission Date: 20171127
  Serious: Yes (Death, Other)
  Sender: FDA-Public Use
  Company Number: JP-009507513-1705JPN002619J

PATIENT
  Age: 58 Year
  Sex: Female
  Weight: 43 kg

DRUGS (26)
  1. MORPHINE SULFATE HYDRATE [Concomitant]
     Dosage: 30.0 MG, BID
     Route: 048
     Dates: end: 20170607
  2. MINIRINMELT OD [Concomitant]
     Indication: HYPOTHYROIDISM
     Dosage: 60 MICROGRAM, QD
     Route: 048
     Dates: start: 20170602, end: 20170620
  3. SOMATORELIN ACETATE [Concomitant]
     Dosage: 100.0 MICROGRAM, QD
     Route: 051
     Dates: start: 20170526, end: 20170526
  4. NYROZIN [Concomitant]
     Dosage: 10.0 ML, QD
     Route: 051
     Dates: start: 20170505, end: 20170509
  5. PANTETHINE [Concomitant]
     Active Substance: PANTETHINE
     Dosage: 100.0 MG, TID
     Route: 048
     Dates: end: 20170620
  6. FAMOTIDINE. [Concomitant]
     Active Substance: FAMOTIDINE
     Dosage: 20.0 MG, BID
     Route: 051
     Dates: start: 20170615
  7. GONADORELIN [Concomitant]
     Active Substance: GONADORELIN
     Dosage: 0.1 MG, QD
     Route: 051
     Dates: start: 20170526, end: 20170526
  8. MORPHINE HYDROCHLORIDE HYDRATE [Concomitant]
     Active Substance: MORPHINE HYDROCHLORIDE
     Dosage: 10.0 MG, QD
     Route: 051
     Dates: start: 20170608
  9. DENOTAS [Concomitant]
     Active Substance: CALCIUM CARBONATE\CHOLECALCIFEROL\MAGNESIUM CARBONATE
     Dosage: 1.0 DF, BID
     Route: 048
     Dates: end: 20170608
  10. PRIMPERAN [Concomitant]
     Active Substance: METOCLOPRAMIDE HYDROCHLORIDE
     Dosage: 10.0 MG, QD
     Route: 051
     Dates: start: 20170609
  11. ASVERIN (TIPEPIDINE HIBENZATE) [Concomitant]
     Active Substance: TIPEPIDINE HIBENZATE
     Dosage: 20.0 MG, TID
     Route: 048
     Dates: end: 20170620
  12. DESMOPRESSIN [Concomitant]
     Active Substance: DESMOPRESSIN
     Dosage: 10 MICROGRAM, BID
     Route: 045
     Dates: start: 20170619
  13. DEXAMETHASONE. [Concomitant]
     Active Substance: DEXAMETHASONE
     Indication: LUNG ADENOCARCINOMA
     Dosage: 1.0 MG, BID
     Route: 048
     Dates: end: 20170614
  14. NYROZIN [Concomitant]
     Dosage: 10.0 ML, QD
     Route: 051
     Dates: start: 20170517, end: 20170517
  15. MAGMITT [Concomitant]
     Active Substance: MAGNESIUM OXIDE
     Dosage: 330.0 MG, TID
     Route: 048
     Dates: end: 20170620
  16. THYRADIN S [Concomitant]
     Active Substance: LEVOTHYROXINE SODIUM
     Indication: HYPOTHYROIDISM
     Dosage: 25 MICROGRAM, QD
     Route: 048
     Dates: start: 20170526, end: 20170620
  17. BFLUID [Concomitant]
     Active Substance: AMINO ACIDS\DEXTROSE\ELECTROLYTES NOS\VITAMINS
     Dosage: 500.0 ML, QD
     Route: 051
     Dates: start: 20170606
  18. PROTIRELIN [Concomitant]
     Active Substance: PROTIRELIN
     Dosage: 0.5 MG, QD
     Route: 051
     Dates: start: 20170526, end: 20170526
  19. DENOSUMAB [Concomitant]
     Active Substance: DENOSUMAB
     Indication: LUNG ADENOCARCINOMA
     Dosage: 120 MG, EVERY 4 WEEKS
     Route: 065
  20. NEXIUM [Concomitant]
     Active Substance: ESOMEPRAZOLE MAGNESIUM
     Dosage: 20.0 MG, QD
     Route: 048
     Dates: end: 20170608
  21. PRIMPERAN [Concomitant]
     Active Substance: METOCLOPRAMIDE HYDROCHLORIDE
     Dosage: 5.0 MG, TID
     Route: 048
     Dates: end: 20170608
  22. KEYTRUDA [Suspect]
     Active Substance: PEMBROLIZUMAB
     Indication: LUNG ADENOCARCINOMA
     Dosage: 200 MG, Q3W
     Route: 041
     Dates: start: 20170502, end: 20170613
  23. NYROZIN [Concomitant]
     Dosage: 10.0 ML, QD
     Route: 051
     Dates: start: 20170602, end: 20170605
  24. AMBROXOL HYDROCHLORIDE [Concomitant]
     Active Substance: AMBROXOL HYDROCHLORIDE
     Dosage: 15.0 MG, TID
     Route: 048
     Dates: end: 20170620
  25. MEROPENEM HYDRATE [Concomitant]
     Active Substance: MEROPENEM
     Indication: PROPHYLAXIS
     Dosage: 1.0 G, TID
     Route: 051
     Dates: start: 20170603, end: 20170609
  26. DEXAMETHASONE. [Concomitant]
     Active Substance: DEXAMETHASONE
     Indication: LUNG ADENOCARCINOMA
     Dosage: 3.3 MG, QD
     Route: 051
     Dates: start: 20170615

REACTIONS (6)
  - Malignant neoplasm progression [Fatal]
  - Carbohydrate antigen 19-9 increased [Not Recovered/Not Resolved]
  - Muscular weakness [Not Recovered/Not Resolved]
  - Carcinoembryonic antigen increased [Not Recovered/Not Resolved]
  - Urine output increased [Not Recovered/Not Resolved]
  - Hypothyroidism [Not Recovered/Not Resolved]

NARRATIVE: CASE EVENT DATE: 20170523
